FAERS Safety Report 12438917 (Version 1)
Quarter: 2016Q2

REPORT INFORMATION
  Report Type: Report from Study
  Country: US (occurrence: US)
  Receive Date: 20160606
  Receipt Date: 20160606
  Transmission Date: 20160815
  Serious: Yes (Death, Other)
  Sender: FDA-Public Use
  Company Number: US-MALLINCKRODT-T201602128

PATIENT
  Age: 70 Year
  Sex: Male

DRUGS (1)
  1. REPOSITORY CORTICOTROPIN INJECTION [Suspect]
     Active Substance: CORTICOTROPIN
     Indication: SARCOIDOSIS
     Dosage: 80U 2X/WEEK
     Route: 030
     Dates: start: 20160203, end: 20160406

REACTIONS (6)
  - Internal haemorrhage [Fatal]
  - Swelling [Unknown]
  - Cellulitis [Unknown]
  - Renal failure [Unknown]
  - Blood pressure abnormal [Unknown]
  - Pneumonia [Unknown]

NARRATIVE: CASE EVENT DATE: 201604
